FAERS Safety Report 12423868 (Version 1)
Quarter: 2016Q2

REPORT INFORMATION
  Report Type: Spontaneous
  Country: US (occurrence: US)
  Receive Date: 20160601
  Receipt Date: 20160601
  Transmission Date: 20160815
  Serious: No
  Sender: FDA-Public Use
  Company Number: US-NOVEN PHARMACEUTICALS, INC.-US2016000334

PATIENT

DRUGS (3)
  1. DAYTRANA [Suspect]
     Active Substance: METHYLPHENIDATE
     Dosage: 15 MG, UNKNOWN
     Route: 062
     Dates: end: 201602
  2. DAYTRANA [Suspect]
     Active Substance: METHYLPHENIDATE
     Indication: ATTENTION DEFICIT/HYPERACTIVITY DISORDER
     Dosage: 10 MG, UNKNOWN
     Route: 062
     Dates: start: 201509
  3. DAYTRANA [Suspect]
     Active Substance: METHYLPHENIDATE
     Dosage: 20 MG, UNKNOWN
     Route: 062

REACTIONS (4)
  - Drug dose omission [Not Recovered/Not Resolved]
  - Decreased appetite [Unknown]
  - Off label use [Unknown]
  - Drug effect decreased [Recovered/Resolved]

NARRATIVE: CASE EVENT DATE: 201602
